FAERS Safety Report 20069441 (Version 3)
Quarter: 2022Q1

REPORT INFORMATION
  Report Type: Spontaneous
  Country: US (occurrence: US)
  Receive Date: 20211115
  Receipt Date: 20220204
  Transmission Date: 20220423
  Serious: No
  Sender: FDA-Public Use
  Company Number: US-PFIZER INC-2020287940

PATIENT
  Age: 5 Year
  Sex: Female
  Weight: 23.13 kg

DRUGS (1)
  1. GENOTROPIN [Suspect]
     Active Substance: SOMATROPIN
     Indication: Prader-Willi syndrome
     Dosage: 1.2 MG, DAILY (1.2MG INJECTION EVERY NIGHT ALTERNATE LEFT AND RIGHT BUTT AND LEFT AND RIGHT THIGH)
     Route: 058

REACTIONS (3)
  - Drug dose omission by device [Unknown]
  - Device leakage [Unknown]
  - Device malfunction [Unknown]
